FAERS Safety Report 24831239 (Version 3)
Quarter: 2025Q2

REPORT INFORMATION
  Report Type: Spontaneous
  Country: US (occurrence: US)
  Receive Date: 20250110
  Receipt Date: 20250416
  Transmission Date: 20250717
  Serious: No
  Sender: NOVARTIS
  Company Number: US-002147023-NVSC2025US003353

PATIENT
  Age: 72 Year
  Sex: Male

DRUGS (2)
  1. COSENTYX [Suspect]
     Active Substance: SECUKINUMAB
     Indication: Psoriasis
     Dosage: 300 MG, QMO (INJECTION)
     Route: 050
  2. CHOLESTEROL [Concomitant]
     Active Substance: CHOLESTEROL
     Indication: Product used for unknown indication
     Route: 065

REACTIONS (5)
  - Cough [Unknown]
  - Accidental exposure to product [Unknown]
  - Product dose omission issue [Unknown]
  - Device malfunction [Unknown]
  - Sinusitis [Unknown]

NARRATIVE: CASE EVENT DATE: 20240107
